FAERS Safety Report 13848983 (Version 2)
Quarter: 2017Q4

REPORT INFORMATION
  Report Type: Report from Study
  Country: US (occurrence: US)
  Receive Date: 20170809
  Receipt Date: 20171025
  Transmission Date: 20180320
  Serious: No
  Sender: FDA-Public Use
  Company Number: PHEH2017US024933

PATIENT
  Sex: Male

DRUGS (1)
  1. OMNITROPE [Suspect]
     Active Substance: SOMATROPIN
     Indication: GROWTH HORMONE DEFICIENCY
     Dosage: 1.7 MG X 7 DAYS A WEEK
     Route: 058
     Dates: start: 20170710

REACTIONS (2)
  - Injection site pain [Recovered/Resolved]
  - Liquid product physical issue [Recovered/Resolved]
